FAERS Safety Report 4488646-6 (Version None)
Quarter: 2004Q4

REPORT INFORMATION
  Report Type: 
  Country: None (occurrence: None)
  Receive Date: 20041026
  Receipt Date: 20041008
  Transmission Date: 20050328
  Serious: Yes (Hospitalization, Other)
  Sender: FDA-Public Use
  Company Number: USA041080548

PATIENT
  Age: 81 Year
  Sex: Female
  Weight: 60 kg

DRUGS (5)
  1. FORTEO [Suspect]
     Indication: OSTEOPOROSIS
     Dates: start: 20031201, end: 20040301
  2. COZAAR [Concomitant]
  3. CARDURA [Concomitant]
  4. PROCRIT [Concomitant]
  5. TYLENOL [Concomitant]

REACTIONS (5)
  - ABASIA [None]
  - CARDIAC FAILURE CONGESTIVE [None]
  - DYSPNOEA [None]
  - HEART RATE IRREGULAR [None]
  - PAIN EXACERBATED [None]
